FAERS Safety Report 6149088-0 (Version None)
Quarter: 2009Q2

REPORT INFORMATION
  Report Type: 
  Country: None (occurrence: None)
  Receive Date: 20090409
  Receipt Date: 20090331
  Transmission Date: 20091009
  Serious: Yes (Other)
  Sender: FDA-Public Use
  Company Number: PHHY2009NO11992

PATIENT

DRUGS (1)
  1. LEPONEX [Suspect]
     Dosage: 600 MG, UNK
     Dates: start: 20080901

REACTIONS (2)
  - FALL [None]
  - MUSCULAR WEAKNESS [None]
